FAERS Safety Report 21469966 (Version 9)
Quarter: 2025Q3

REPORT INFORMATION
  Report Type: Report from Study
  Country: US (occurrence: US)
  Receive Date: 20221018
  Receipt Date: 20250825
  Transmission Date: 20251020
  Serious: Yes (Hospitalization, Other)
  Sender: TAKEDA
  Company Number: US-TAKEDA-US202018290

PATIENT
  Age: 57 Year
  Sex: Female

DRUGS (2)
  1. HUMAN IMMUNOGLOBULIN G [Suspect]
     Active Substance: HUMAN IMMUNOGLOBULIN G
     Indication: Primary immunodeficiency syndrome
     Dosage: 7 GRAM, 1/WEEK
     Dates: start: 20190905
  2. HUMAN IMMUNOGLOBULIN G [Suspect]
     Active Substance: HUMAN IMMUNOGLOBULIN G
     Indication: Immunodeficiency common variable

REACTIONS (35)
  - Dyspnoea [Unknown]
  - Precancerous lesion of digestive tract [Unknown]
  - Ulcerative keratitis [Unknown]
  - Precancerous skin lesion [Unknown]
  - Gastroenteritis viral [Unknown]
  - Pain [Unknown]
  - Product container seal issue [Unknown]
  - Product container issue [Unknown]
  - Bronchitis [Unknown]
  - Gastrointestinal ulcer [Unknown]
  - Neck pain [Unknown]
  - Tooth abscess [Unknown]
  - Glucose tolerance impaired [Unknown]
  - Hand fracture [Unknown]
  - Illness [Unknown]
  - Dehydration [Unknown]
  - Heat stroke [Unknown]
  - Gastrointestinal microorganism overgrowth [Unknown]
  - Gastrointestinal disorder [Unknown]
  - COVID-19 [Unknown]
  - Costochondritis [Unknown]
  - Pancreatic cyst [Unknown]
  - Weight decreased [Unknown]
  - Panic attack [Unknown]
  - Sinusitis [Unknown]
  - Asthma [Unknown]
  - Feeling abnormal [Unknown]
  - Pain in extremity [Unknown]
  - Paraesthesia [Unknown]
  - Pyrexia [Unknown]
  - Back pain [Unknown]
  - Headache [Unknown]
  - Rib fracture [Unknown]
  - Fracture pain [Not Recovered/Not Resolved]
  - Rash erythematous [Unknown]

NARRATIVE: CASE EVENT DATE: 20210604
